FAERS Safety Report 6163600-7 (Version None)
Quarter: 2009Q2

REPORT INFORMATION
  Report Type: 
  Country: None (occurrence: None)
  Receive Date: 20090422
  Receipt Date: 20090409
  Transmission Date: 20091009
  Serious: Yes (Other)
  Sender: FDA-Public Use
  Company Number: DE-ROCHE-624041

PATIENT
  Sex: Male
  Weight: 92 kg

DRUGS (1)
  1. ROFERON-A [Suspect]
     Indication: MALIGNANT MELANOMA
     Route: 058
     Dates: start: 20080301, end: 20090325

REACTIONS (2)
  - MULTIPLE SCLEROSIS [None]
  - POLYNEUROPATHY [None]
